FAERS Safety Report 20562567 (Version 2)
Quarter: 2022Q1

REPORT INFORMATION
  Report Type: Spontaneous
  Country: GB (occurrence: GB)
  Receive Date: 20220307
  Receipt Date: 20220311
  Transmission Date: 20220423
  Serious: Yes (Other)
  Sender: FDA-Public Use
  Company Number: GB-GE HEALTHCARE-2022CSU001380

PATIENT
  Age: 46 Year
  Sex: Male
  Weight: 117 kg

DRUGS (2)
  1. OMNIPAQUE [Suspect]
     Active Substance: IOHEXOL
     Indication: Computerised tomogram abdomen
     Dosage: 90 ML, VIA RIGHT ANTECUBITAL FOSSA, ONCE
     Route: 042
     Dates: start: 20220226, end: 20220226
  2. OMNIPAQUE [Suspect]
     Active Substance: IOHEXOL
     Indication: Abdominal pain

REACTIONS (4)
  - Stridor [Recovered/Resolved]
  - Feeling hot [Recovered/Resolved]
  - Pruritus [Recovered/Resolved]
  - Urticaria [Recovered/Resolved]

NARRATIVE: CASE EVENT DATE: 20220226
